FAERS Safety Report 5004947-7 (Version None)
Quarter: 2006Q1

REPORT INFORMATION
  Report Type: 
  Country: None (occurrence: None)
  Receive Date: 20060321
  Receipt Date: 20051213
  Transmission Date: 20060701
  Serious: No
  Sender: FDA-Public Use
  Company Number: YPA20060009

PATIENT
  Age: 82 Year
  Sex: Female
  Weight: 68.2 kg

DRUGS (5)
  1. VESICARE [Suspect]
     Indication: URINARY INCONTINENCE
     Dosage: 5 MG, UID/QD, ORAL
     Route: 048
     Dates: start: 20051203
  2. CLONIDINE HCL (CLONIDINE HYDROCHLORIDE) [Concomitant]
  3. DETROL [Concomitant]
  4. SENNA LAX-S TABLET [Concomitant]
  5. BLOOD PRESSURE MEDICATION [Concomitant]

REACTIONS (1)
  - CONSTIPATION [None]
